FAERS Safety Report 4513615-7 (Version None)
Quarter: 2004Q4

REPORT INFORMATION
  Report Type: 
  Country: None (occurrence: None)
  Receive Date: 20041130
  Receipt Date: 20040813
  Transmission Date: 20050328
  Serious: No
  Sender: FDA-Public Use
  Company Number: US-GLAXOSMITHKLINE-A0522119A

PATIENT
  Age: 46 Year
  Sex: Female

DRUGS (2)
  1. WELLBUTRIN XL [Suspect]
     Indication: DEPRESSION
     Dosage: 150MG TWICE PER DAY
     Route: 048
     Dates: start: 20040802, end: 20040809
  2. CLIMARA [Concomitant]

REACTIONS (6)
  - DIZZINESS [None]
  - INSOMNIA [None]
  - NAUSEA [None]
  - VERTIGO [None]
  - VESTIBULAR NEURONITIS [None]
  - VOMITING [None]
